FAERS Safety Report 21972796 (Version 2)
Quarter: 2023Q1

REPORT INFORMATION
  Report Type: Spontaneous
  Country: IT (occurrence: IT)
  Receive Date: 20230209
  Receipt Date: 20230308
  Transmission Date: 20230417
  Serious: Yes (Other)
  Sender: FDA-Public Use
  Company Number: None

PATIENT
  Age: 54 Year
  Sex: Female
  Weight: 75 kg

DRUGS (3)
  1. FILGRASTIM [Suspect]
     Active Substance: FILGRASTIM
     Indication: Colony stimulating factor therapy
     Dosage: 30 MIU, DAILY
     Route: 058
     Dates: start: 20221231, end: 20230105
  2. IFOSFAMIDE [Concomitant]
     Active Substance: IFOSFAMIDE
     Indication: Chondrosarcoma
     Dosage: LAST CYCLE PRACTICED DAYS 27-28-29
     Route: 042
     Dates: start: 20221227, end: 20221229
  3. CISPLATIN [Concomitant]
     Active Substance: CISPLATIN
     Indication: Chondrosarcoma
     Dosage: LAST CYCLE PRACTICED DAYS 27-28-29
     Route: 042
     Dates: start: 20220830, end: 20221229

REACTIONS (2)
  - Thrombocytopenia [Recovered/Resolved]
  - Drug ineffective [Recovered/Resolved]

NARRATIVE: CASE EVENT DATE: 20230105
